FAERS Safety Report 11500334 (Version 1)
Quarter: 2015Q3

REPORT INFORMATION
  Report Type: Report from Study
  Country: DE (occurrence: DE)
  Receive Date: 20150914
  Receipt Date: 20150914
  Transmission Date: 20151125
  Serious: Yes (Other)
  Sender: FDA-Public Use
  Company Number: DE-ROCHE-1541198

PATIENT
  Age: 36 Year
  Sex: Male
  Weight: 89 kg

DRUGS (8)
  1. TELAPREVIR [Suspect]
     Active Substance: TELAPREVIR
     Indication: CHRONIC HEPATITIS C
     Route: 048
     Dates: start: 20130314, end: 20130606
  2. PEG-INTERFERON ALFA 2A [Suspect]
     Active Substance: PEGINTERFERON ALFA-2A
     Indication: CHRONIC HEPATITIS C
     Route: 058
     Dates: start: 20130314, end: 20140206
  3. ADVANTAN [Concomitant]
     Active Substance: CORTICOSTEROID NOS
     Route: 065
     Dates: start: 20130327, end: 20130505
  4. PANTOPRAZOLE SODIUM. [Suspect]
     Active Substance: PANTOPRAZOLE SODIUM
     Indication: GASTRITIS
     Dosage: 20 MG PER DAY AS REQUIRED
     Route: 048
     Dates: start: 20130321
  5. ZOPICLON [Suspect]
     Active Substance: ZOPICLONE
     Indication: SLEEP DISORDER
     Dosage: 7.5 MG PER DAY AS REQUIRED
     Route: 048
     Dates: start: 20130708, end: 20140310
  6. RIBAVIRIN. [Suspect]
     Active Substance: RIBAVIRIN
     Indication: CHRONIC HEPATITIS C
     Route: 048
     Dates: start: 20130314, end: 20140213
  7. FACTOR VIII [Concomitant]
     Active Substance: ANTIHEMOPHILIC FACTOR HUMAN
  8. SUMATRIPTAN. [Concomitant]
     Active Substance: SUMATRIPTAN
     Route: 065
     Dates: start: 20131001, end: 20131029

REACTIONS (15)
  - Anaemia [Recovered/Resolved]
  - Cheilitis [Recovered/Resolved]
  - Depression [Recovered/Resolved]
  - Leukopenia [Recovered/Resolved]
  - Migraine [Recovered/Resolved]
  - Arthralgia [Recovered/Resolved]
  - Anal pruritus [Recovered/Resolved]
  - Thrombocytopenia [Recovered/Resolved]
  - Acute stress disorder [Recovered/Resolved]
  - Gastritis [Recovered/Resolved]
  - Insomnia [Recovered/Resolved]
  - Fungal skin infection [Recovered/Resolved]
  - Nausea [Recovered/Resolved]
  - Eczema [Recovered/Resolved]
  - Pruritus [Recovered/Resolved]

NARRATIVE: CASE EVENT DATE: 20130314
